FAERS Safety Report 6962341-3 (Version None)
Quarter: 2010Q3

REPORT INFORMATION
  Report Type: 
  Country: None (occurrence: None)
  Receive Date: 20100902
  Receipt Date: 20100730
  Transmission Date: 20110219
  Serious: Yes (Other)
  Sender: FDA-Public Use
  Company Number: US-BAYER-201019111BCC

PATIENT
  Sex: Male

DRUGS (1)
  1. ASPIRIN [Suspect]
     Indication: PRODUCT USED FOR UNKNOWN INDICATION
     Dosage: UNKNOW BOTTLE COUNT
     Route: 048

REACTIONS (3)
  - ANAPHYLACTIC REACTION [None]
  - LIP SWELLING [None]
  - PHARYNGEAL OEDEMA [None]
